FAERS Safety Report 5381808-5 (Version None)
Quarter: 2007Q3

REPORT INFORMATION
  Report Type: 
  Country: None (occurrence: None)
  Receive Date: 20070705
  Receipt Date: 20070705
  Transmission Date: 20080115
  Serious: Yes (Hospitalization)
  Sender: FDA-Public Use
  Company Number: None

PATIENT
  Age: 47 Year
  Sex: Female
  Weight: 61.2356 kg

DRUGS (1)
  1. FOSAMAX [Suspect]
     Indication: OSTEOPENIA
     Dosage: 70 MG. DAILY PO  (DURATION: 9 DOSES)
     Route: 048
     Dates: start: 20050520, end: 20050715

REACTIONS (1)
  - CEREBROVASCULAR ACCIDENT [None]
